FAERS Safety Report 23691742 (Version 1)
Quarter: 2024Q2

REPORT INFORMATION
  Report Type: Spontaneous
  Country: BE (occurrence: BE)
  Receive Date: 20240401
  Receipt Date: 20240401
  Transmission Date: 20240715
  Serious: Yes (Other)
  Sender: FDA-Public Use
  Company Number: BE-MYLANLABS-2024M1028666

PATIENT
  Age: 60 Year
  Sex: Male

DRUGS (4)
  1. EPROSARTAN [Suspect]
     Active Substance: EPROSARTAN
     Indication: Hypertension
     Dosage: UNK
     Route: 065
  2. ASPIRIN [Concomitant]
     Active Substance: ASPIRIN
     Indication: Hypercholesterolaemia
     Dosage: UNK
     Route: 065
  3. ROSUVASTATIN [Concomitant]
     Active Substance: ROSUVASTATIN
     Indication: Hypercholesterolaemia
     Dosage: UNK
     Route: 065
  4. BISOPROLOL [Concomitant]
     Active Substance: BISOPROLOL\BISOPROLOL FUMARATE
     Indication: Hypertension
     Dosage: UNK
     Route: 065

REACTIONS (1)
  - Interstitial lung disease [Recovering/Resolving]
